FAERS Safety Report 8117232-1 (Version None)
Quarter: 2012Q1

REPORT INFORMATION
  Report Type: 
  Country: None (occurrence: None)
  Receive Date: 20120206
  Receipt Date: 20120127
  Transmission Date: 20120608
  Serious: Yes (Other)
  Sender: FDA-Public Use
  Company Number: US-ASTRAZENECA-2011SE24821

PATIENT
  Age: 42 Year
  Sex: Female
  Weight: 100.7 kg

DRUGS (9)
  1. SEROQUEL XR [Suspect]
     Indication: POST-TRAUMATIC STRESS DISORDER
     Route: 048
     Dates: start: 20100101
  2. LISINOPRIL [Concomitant]
     Indication: HYPERTENSION
     Route: 048
  3. CODEINE SULFATE [Concomitant]
     Indication: PAIN
     Route: 048
  4. INDERAL [Concomitant]
     Indication: BLOOD PRESSURE
     Route: 048
  5. CYMBALTA [Concomitant]
     Indication: DEPRESSION
     Route: 048
  6. SEROQUEL XR [Suspect]
     Route: 048
  7. SEROQUEL XR [Suspect]
     Route: 048
  8. TOPAMAX [Concomitant]
     Route: 048
  9. SEROQUEL XR [Suspect]
     Indication: MAJOR DEPRESSION
     Route: 048
     Dates: start: 20100101

REACTIONS (8)
  - CONSTIPATION [None]
  - INSOMNIA [None]
  - WITHDRAWAL SYNDROME [None]
  - TREMOR [None]
  - NAUSEA [None]
  - OFF LABEL USE [None]
  - DRUG DOSE OMISSION [None]
  - HAEMORRHOIDAL HAEMORRHAGE [None]
